FAERS Safety Report 25440626 (Version 1)
Quarter: 2025Q2

REPORT INFORMATION
  Report Type: Spontaneous
  Country: DE (occurrence: DE)
  Receive Date: 20250616
  Receipt Date: 20250616
  Transmission Date: 20250716
  Serious: Yes (Hospitalization, Other)
  Sender: PFIZER
  Company Number: DE-EMB-M202402668-1

PATIENT
  Sex: Male
  Weight: 2.88 kg

DRUGS (9)
  1. LORAZEPAM [Suspect]
     Active Substance: LORAZEPAM
     Dosage: 2.5 MG, DAILY (INITIALLY 2.5 MG/D, THEN REDUCED TO 0.5 MG/D UNTIL DELIVERY)
     Route: 064
     Dates: start: 202312
  2. LORAZEPAM [Suspect]
     Active Substance: LORAZEPAM
     Dosage: 0.5 MG, DAILY (INITIALLY 2.5 MG/D, THEN REDUCED TO 0.5 MG/D UNTIL DELIVERY)
     Route: 064
     Dates: end: 202409
  3. DOXEPIN [Suspect]
     Active Substance: DOXEPIN
     Indication: Depression
     Dosage: 100 MG, DAILY (INITIALLY 100 MG/D, DURING PREGNANCY COURSE REDUCED TO 50 MG/D)
     Route: 064
     Dates: start: 202312
  4. DOXEPIN [Suspect]
     Active Substance: DOXEPIN
     Indication: Anxiety
     Dosage: 50 MG, DAILY (INITIALLY 100 MG/D, DURING PREGNANCY COURSE REDUCED TO 50 MG/D)
     Route: 064
     Dates: end: 202409
  5. DOXEPIN [Suspect]
     Active Substance: DOXEPIN
     Indication: Panic disorder
  6. NALOXONE HYDROCHLORIDE\TILIDINE HYDROCHLORIDE [Suspect]
     Active Substance: NALOXONE HYDROCHLORIDE\TILIDINE HYDROCHLORIDE
     Indication: Scoliosis
     Route: 064
     Dates: start: 202312
  7. NALOXONE HYDROCHLORIDE\TILIDINE HYDROCHLORIDE [Suspect]
     Active Substance: NALOXONE HYDROCHLORIDE\TILIDINE HYDROCHLORIDE
     Indication: Intervertebral disc protrusion
     Route: 064
     Dates: end: 202409
  8. NALOXONE HYDROCHLORIDE\TILIDINE HYDROCHLORIDE [Suspect]
     Active Substance: NALOXONE HYDROCHLORIDE\TILIDINE HYDROCHLORIDE
     Indication: Neuralgia
  9. FOLIC ACID [Concomitant]
     Active Substance: FOLIC ACID
     Indication: Prophylaxis of neural tube defect
     Route: 064

REACTIONS (2)
  - Drug withdrawal syndrome neonatal [Recovered/Resolved]
  - Maternal exposure during pregnancy [Unknown]

NARRATIVE: CASE EVENT DATE: 20240901
